FAERS Safety Report 5931450-X (Version None)
Quarter: 2008Q4

REPORT INFORMATION
  Report Type: 
  Country: None (occurrence: None)
  Receive Date: 20081024
  Receipt Date: 20081024
  Transmission Date: 20090506
  Serious: Yes (Life-Threatening)
  Sender: FDA-Public Use
  Company Number: None

PATIENT
  Sex: Female

DRUGS (1)
  1. CRESTOR [Suspect]
     Dosage: ONCE A DAY ORALLY CONSUMED EACH EVENING
     Route: 048
     Dates: start: 20081006, end: 20081008

REACTIONS (3)
  - HEADACHE [None]
  - NAUSEA [None]
  - SHOCK HYPOGLYCAEMIC [None]
